FAERS Safety Report 8718192 (Version 3)
Quarter: 2013Q1

REPORT INFORMATION
  Report Type: Spontaneous
  Country: US (occurrence: US)
  Receive Date: 20120810
  Receipt Date: 20130219
  Transmission Date: 20140127
  Serious: No
  Sender: FDA-Public Use
  Company Number: US-B.I. PHARMACEUTICALS,INC./RIDGEFIELD-2012-BP-17536BP

PATIENT
  Sex: Female
  Weight: 57.15 kg

DRUGS (9)
  1. PRADAXA [Suspect]
     Indication: ATRIAL FIBRILLATION
     Dosage: 150 MG
     Route: 048
     Dates: start: 201101
  2. PRADAXA [Suspect]
     Indication: CEREBROVASCULAR ACCIDENT PROPHYLAXIS
  3. ATENOLOL [Concomitant]
     Indication: BLOOD PRESSURE
     Dosage: 50 MG
     Route: 048
  4. VITAMIN D [Concomitant]
     Indication: VITAMIN SUPPLEMENTATION
     Dosage: 800 MG
     Route: 048
  5. DIGOXIN [Concomitant]
     Indication: HEART RATE
     Dosage: 0.125 MG
     Route: 048
  6. FUROSEMIDE [Concomitant]
     Indication: FLUID RETENTION
     Dosage: 10 MG
     Route: 048
  7. JOINT SILVER VITAMINS [Concomitant]
     Indication: ARTHRALGIA
     Route: 048
     Dates: start: 2002
  8. PERCEIVA [Concomitant]
     Indication: MACULAR DEGENERATION
  9. SPIRONOLACTONE [Concomitant]
     Indication: FLUID RETENTION
     Dosage: 25 MG
     Route: 048

REACTIONS (5)
  - Rash macular [Not Recovered/Not Resolved]
  - Epistaxis [Recovered/Resolved]
  - Haemorrhage [Recovered/Resolved]
  - Rash macular [Recovered/Resolved]
  - Vomiting [Recovered/Resolved]
